FAERS Safety Report 24064378 (Version 1)
Quarter: 2024Q3

REPORT INFORMATION
  Report Type: Spontaneous
  Country: US (occurrence: None)
  Receive Date: 20240708
  Receipt Date: 20240708
  Transmission Date: 20241017
  Serious: No
  Sender: Public
  Company Number: None

PATIENT
  Sex: Female

DRUGS (1)
  1. ADALIMUMAB [Suspect]
     Active Substance: ADALIMUMAB\ISOPROPYL ALCOHOL
     Indication: Rheumatoid arthritis
     Dosage: 40 MG EVERY 14 DAYS SUBCUTANEOUSLY?
     Route: 058
     Dates: start: 202402

REACTIONS (3)
  - Lip blister [None]
  - Stress [None]
  - Similar reaction on previous exposure to drug [None]
